FAERS Safety Report 13460433 (Version 1)
Quarter: 2017Q2

REPORT INFORMATION
  Report Type: Spontaneous
  Country: US (occurrence: US)
  Receive Date: 20170420
  Receipt Date: 20170420
  Transmission Date: 20170830
  Serious: Yes (Other)
  Sender: FDA-Public Use
  Company Number: US-PFIZER INC-2017165691

PATIENT
  Age: 54 Year
  Sex: Female
  Weight: 93 kg

DRUGS (1)
  1. AZITHROMYCIN ANHYDROUS. [Suspect]
     Active Substance: AZITHROMYCIN ANHYDROUS
     Dosage: 250 MG, 1X/DAY
     Route: 048
     Dates: start: 20170405, end: 20170410

REACTIONS (2)
  - Stevens-Johnson syndrome [Unknown]
  - Pruritus [Unknown]

NARRATIVE: CASE EVENT DATE: 20170405
